FAERS Safety Report 23912666 (Version 2)
Quarter: 2024Q2

REPORT INFORMATION
  Report Type: Spontaneous
  Country: NL (occurrence: NL)
  Receive Date: 20240529
  Receipt Date: 20240605
  Transmission Date: 20240716
  Serious: Yes (Hospitalization, Other)
  Sender: FDA-Public Use
  Company Number: NL-AUROBINDO-AUR-APL-2024-024224

PATIENT
  Age: 67 Year
  Sex: Male

DRUGS (2)
  1. OLMESARTAN MEDOXOMIL [Suspect]
     Active Substance: OLMESARTAN MEDOXOMIL
     Indication: Hypertension
     Dosage: 160 MILLIGRAM, DAILY (WHILE A MAXIMUM RECOMMENDED DOSE WAS 40MG PER DAY, 160 MG, QD; HIGHDOSE)
     Route: 065
  2. OLMESARTAN MEDOXOMIL [Suspect]
     Active Substance: OLMESARTAN MEDOXOMIL
     Indication: Infection

REACTIONS (6)
  - Respiratory failure [Unknown]
  - Thrombocytopenia [Recovered/Resolved]
  - Aplastic anaemia [Recovered/Resolved]
  - Infection [Unknown]
  - Intentional overdose [Unknown]
  - Bone marrow failure [Recovered/Resolved]
